FAERS Safety Report 4302588-8 (Version None)
Quarter: 2004Q1

REPORT INFORMATION
  Report Type: 
  Country: None (occurrence: None)
  Receive Date: 20040224
  Receipt Date: 20040214
  Transmission Date: 20041129
  Serious: Yes (Hospitalization)
  Sender: FDA-Public Use
  Company Number: PE-BRISTOL-MYERS SQUIBB COMPANY-12508289

PATIENT
  Age: 50 Year
  Sex: Female

DRUGS (3)
  1. BLINDED: ABATACEPT [Suspect]
     Indication: RHEUMATOID ARTHRITIS
     Route: 042
     Dates: start: 20030514
  2. BLINDED: METHOTREXATE [Suspect]
     Route: 048
     Dates: start: 20030104, end: 20040211
  3. PREDNISONE [Concomitant]
     Dates: start: 20021201, end: 20040214

REACTIONS (6)
  - CHEST X-RAY ABNORMAL [None]
  - COUGH [None]
  - MALAISE [None]
  - PLEURITIC PAIN [None]
  - PYREXIA [None]
  - TACHYPNOEA [None]
